FAERS Safety Report 9128262 (Version 1)
Quarter: 2013Q1

REPORT INFORMATION
  Report Type: Spontaneous
  Country: IE (occurrence: IE)
  Receive Date: 20130125
  Receipt Date: 20130125
  Transmission Date: 20140127
  Serious: Yes (Hospitalization, Disabling, Other)
  Sender: FDA-Public Use
  Company Number: IE-PFIZER INC-IE-WYE-G00909308

PATIENT
  Age: 44 Year
  Sex: Male
  Weight: 93 kg

DRUGS (15)
  1. EFEXOR XL [Suspect]
     Indication: DEPRESSION
     Dosage: 37.5 MG, 2X/DAY
     Route: 048
     Dates: start: 20051231
  2. EFEXOR XL [Suspect]
     Dosage: 150 MG, DAILY
     Route: 048
  3. EFEXOR XL [Suspect]
     Dosage: 37.5 MG, 2X/DAY
     Route: 048
     Dates: start: 200711
  4. EFEXOR XL [Suspect]
     Dosage: 150 MG, DAILY
  5. EFEXOR XL [Suspect]
     Dosage: 75MG IN THE MORNING AND 37.5MG LATER
     Route: 048
     Dates: start: 20080119, end: 200801
  6. EFEXOR XL [Suspect]
     Dosage: 37.5 MG, 2X/DAY
     Route: 048
     Dates: start: 20080124, end: 20080124
  7. EFEXOR XL [Suspect]
     Dosage: 75MG IN THE MORNING AND 37.5MG LATER
     Route: 048
     Dates: start: 20080125, end: 2008
  8. EFEXOR XL [Suspect]
     Dosage: 150 MG, DAILY
     Route: 048
     Dates: start: 2008, end: 2008
  9. EFEXOR XL [Suspect]
     Dosage: 19.75 MG, EVERY 3 WEEKS
     Route: 048
     Dates: start: 2008
  10. EFEXOR XL [Suspect]
     Dosage: 18 MG, EVERY 3 WEEKS
     Route: 048
  11. EFEXOR XL [Suspect]
     Dosage: 75 MG, 2X/DAY
     Route: 048
     Dates: end: 201105
  12. NU-SEALS [Concomitant]
     Indication: ISCHAEMIC HEART DISEASE PROPHYLAXIS
     Dosage: 75 MG, UNK
     Route: 048
     Dates: start: 200510
  13. LIPITOR [Concomitant]
     Indication: HYPERCHOLESTEROLAEMIA
     Dosage: 20 MG, UNK
     Route: 048
     Dates: start: 200510
  14. ARTHRIMEL [Concomitant]
     Indication: ARTHRITIS
     Dosage: 1500 MG, UNK
     Route: 048
     Dates: start: 200604
  15. GLUCOPHAGE [Concomitant]
     Indication: TYPE 2 DIABETES MELLITUS
     Dosage: 1 MG, IN 2
     Route: 048
     Dates: start: 200510

REACTIONS (23)
  - Drug withdrawal syndrome [Not Recovered/Not Resolved]
  - Yawning [Not Recovered/Not Resolved]
  - Rhinorrhoea [Not Recovered/Not Resolved]
  - Dizziness [Not Recovered/Not Resolved]
  - Tinnitus [Not Recovered/Not Resolved]
  - Pruritus [Not Recovered/Not Resolved]
  - Confusional state [Not Recovered/Not Resolved]
  - Anxiety [Not Recovered/Not Resolved]
  - Fatigue [Not Recovered/Not Resolved]
  - Decreased appetite [Not Recovered/Not Resolved]
  - Visual impairment [Not Recovered/Not Resolved]
  - Abnormal dreams [Not Recovered/Not Resolved]
  - Hyperhidrosis [Recovered/Resolved]
  - Paraesthesia [Not Recovered/Not Resolved]
  - Tremor [Not Recovered/Not Resolved]
  - Insomnia [Not Recovered/Not Resolved]
  - Somnolence [Not Recovered/Not Resolved]
  - Gait disturbance [Recovered/Resolved]
  - Dysphemia [Not Recovered/Not Resolved]
  - Depressed level of consciousness [Recovered/Resolved]
  - Dry mouth [Not Recovered/Not Resolved]
  - Grand mal convulsion [Unknown]
  - Disturbance in attention [Not Recovered/Not Resolved]
